FAERS Safety Report 7592487-0 (Version None)
Quarter: 2011Q3

REPORT INFORMATION
  Report Type: 
  Country: None (occurrence: None)
  Receive Date: 20110706
  Receipt Date: 20110628
  Transmission Date: 20111222
  Serious: Yes (Other)
  Sender: FDA-Public Use
  Company Number: GB-PURDUE-GBR-2011-0008454

PATIENT
  Age: 54 Year
  Sex: Male
  Weight: 94.1 kg

DRUGS (6)
  1. THEOPHYLLINE [Suspect]
     Indication: PRODUCT USED FOR UNKNOWN INDICATION
     Dosage: UNK
     Dates: start: 20110610
  2. AMOXICILLIN [Concomitant]
     Indication: PRODUCT USED FOR UNKNOWN INDICATION
     Dosage: UNK
     Dates: start: 20110610, end: 20110617
  3. PREDNISOLONE [Concomitant]
     Dosage: UNK
     Dates: start: 20110418, end: 20110516
  4. PREDNISOLONE [Concomitant]
     Indication: PRODUCT USED FOR UNKNOWN INDICATION
     Dosage: UNK
     Dates: start: 20110610
  5. VENTOLIN [Concomitant]
     Dosage: UNK
     Dates: start: 20110222
  6. SERETIDE [Concomitant]
     Dosage: UNK
     Dates: start: 20110310, end: 20110407

REACTIONS (1)
  - GYNAECOMASTIA [None]
